FAERS Safety Report 22875924 (Version 3)
Quarter: 2024Q1

REPORT INFORMATION
  Report Type: Spontaneous
  Country: US (occurrence: US)
  Receive Date: 20230829
  Receipt Date: 20240329
  Transmission Date: 20240409
  Serious: Yes (Hospitalization)
  Sender: FDA-Public Use
  Company Number: US-ABBVIE-5381891

PATIENT
  Age: 65 Year
  Sex: Female
  Weight: 65 kg

DRUGS (7)
  1. REFRESH PLUS [Suspect]
     Active Substance: CARBOXYMETHYLCELLULOSE SODIUM
     Indication: Dry eye
     Dosage: TIME INTERVAL: 0.33333333 DAYS: 1 DROP ?LUBRICANT EYE DROPS
     Route: 047
     Dates: start: 2022, end: 202308
  2. REFRESH PLUS [Suspect]
     Active Substance: CARBOXYMETHYLCELLULOSE SODIUM
     Indication: Dry eye
     Dosage: TIME INTERVAL: 0.33333333 DAYS: LUBRICANT EYE DROPS
     Route: 047
     Dates: start: 20230822, end: 20230823
  3. FOLATE SODIUM [Concomitant]
     Active Substance: FOLATE SODIUM
     Indication: Vitamin supplementation
  4. VITAMIN C [Concomitant]
     Active Substance: ASCORBIC ACID
     Indication: Vitamin supplementation
  5. MAGNESIUM;ZINC [Concomitant]
     Indication: Mineral supplementation
  6. VITAMIN B6 [Concomitant]
     Active Substance: PYRIDOXINE HYDROCHLORIDE
     Indication: Vitamin supplementation
  7. VITAMIN B12 [Concomitant]
     Active Substance: CYANOCOBALAMIN
     Indication: Vitamin supplementation

REACTIONS (11)
  - Polypectomy [Recovered/Resolved]
  - Dry eye [Not Recovered/Not Resolved]
  - Vision blurred [Not Recovered/Not Resolved]
  - Haemoglobin decreased [Recovered/Resolved]
  - Eye irritation [Not Recovered/Not Resolved]
  - Eye pain [Not Recovered/Not Resolved]
  - Eye pruritus [Not Recovered/Not Resolved]
  - Ocular hyperaemia [Not Recovered/Not Resolved]
  - Gastric haemorrhage [Recovered/Resolved]
  - Hordeolum [Not Recovered/Not Resolved]
  - Presyncope [Recovered/Resolved]

NARRATIVE: CASE EVENT DATE: 20230725
